FAERS Safety Report 5129084-2 (Version None)
Quarter: 2006Q4

REPORT INFORMATION
  Report Type: 
  Country: None (occurrence: None)
  Receive Date: 20061016
  Receipt Date: 20061016
  Transmission Date: 20070319
  Serious: Yes (Life-Threatening)
  Sender: FDA-Public Use
  Company Number: None

PATIENT

DRUGS (2)
  1. DOPAMINE HYDROCHLORIDE [Suspect]
     Dosage: 400MG/500ML    IV DRIP
     Route: 042
     Dates: start: 20061012, end: 20061012
  2. DOPAMINE HYDROCHLORIDE [Suspect]
     Dosage: 400MG/500ML    IV DRIP
     Route: 042
     Dates: start: 20061012, end: 20061012

REACTIONS (1)
  - HYPOTENSION [None]
